FAERS Safety Report 9239726 (Version 2)
Quarter: 2013Q2

REPORT INFORMATION
  Report Type: Spontaneous
  Country: US (occurrence: US)
  Receive Date: 20130418
  Receipt Date: 20130422
  Transmission Date: 20140414
  Serious: No
  Sender: FDA-Public Use
  Company Number: US-PFIZER INC-2012216662

PATIENT
  Age: 69 Year
  Sex: Female
  Weight: 62.6 kg

DRUGS (10)
  1. CELEBREX [Suspect]
     Indication: ARTHRALGIA
     Dosage: 200 MG, 1X/DAY
  2. CELEBREX [Suspect]
     Dosage: 200 MG, 2X/DAY
  3. NEURONTIN [Suspect]
     Indication: ARTHRALGIA
     Dosage: 1800 MG, THREE TIMES A DAY
     Dates: start: 2000
  4. NEURONTIN [Suspect]
     Dosage: 1800 MG, 3X/DAY
  5. SYNTHROID [Concomitant]
     Indication: AUTOIMMUNE THYROIDITIS
     Dosage: 0.075 UG, ONCE DAILY
     Dates: start: 1996
  6. SIMVASTATIN [Concomitant]
     Dosage: 10 MG
     Dates: start: 2010
  7. PAROXETINE [Concomitant]
     Dosage: 10 MG
     Dates: start: 2000
  8. TRAMADOL [Concomitant]
     Indication: PAIN
     Dosage: 50 MG - 2-3, DAILY
     Dates: start: 2002
  9. BACLOFEN [Concomitant]
     Indication: PAIN
     Dosage: 10 MG-1 OR 2 DAILY
     Dates: start: 2002
  10. VOLTAREN [Concomitant]
     Indication: PAIN
     Dosage: 1 %, 1 TUBE A MONTH
     Dates: start: 2010

REACTIONS (8)
  - Arthropathy [Unknown]
  - Limb discomfort [Unknown]
  - Arthralgia [Unknown]
  - Back pain [Unknown]
  - Activities of daily living impaired [Unknown]
  - Malaise [Unknown]
  - Rash [Unknown]
  - Drug ineffective [Unknown]
